FAERS Safety Report 23313484 (Version 1)
Quarter: 2023Q4

REPORT INFORMATION
  Report Type: Spontaneous
  Country: US (occurrence: None)
  Receive Date: 20231218
  Receipt Date: 20231218
  Transmission Date: 20240109
  Serious: No
  Sender: FDA-Public Use
  Company Number: None

PATIENT
  Age: 54 Year
  Sex: Male

DRUGS (1)
  1. NUCALA [Suspect]
     Active Substance: MEPOLIZUMAB
     Indication: Asthma
     Dosage: FREQUENCY : MONTHLY;?
     Route: 058

REACTIONS (7)
  - Dizziness [None]
  - Asthenia [None]
  - Palpitations [None]
  - Hypotension [None]
  - Hypoaesthesia [None]
  - Blood pressure increased [None]
  - Therapy interrupted [None]
